FAERS Safety Report 9210934 (Version 2)
Quarter: 2013Q3

REPORT INFORMATION
  Report Type: Report from Study
  Country: JP (occurrence: JP)
  Receive Date: 20130404
  Receipt Date: 20130917
  Transmission Date: 20140515
  Serious: Yes (Disabling)
  Sender: FDA-Public Use
  Company Number: JP-ACTELION-A-CH2013-81394

PATIENT
  Age: 6 Year
  Sex: Female
  Weight: 19 kg

DRUGS (10)
  1. TRACLEER [Suspect]
     Indication: PULMONARY ARTERIAL HYPERTENSION
     Dosage: 31.25 MG, BID
     Route: 048
     Dates: start: 20100407
  2. TRACLEER [Suspect]
     Dosage: 15.63 MG, BID
     Route: 048
     Dates: start: 20100313, end: 20100406
  3. WARFARIN POTASSIUM [Suspect]
     Indication: PULMONARY ARTERIAL HYPERTENSION
     Dosage: 0.6 MG, QD
     Route: 048
     Dates: start: 20100313, end: 20100426
  4. PREDNISOLONE [Suspect]
     Indication: HENOCH-SCHONLEIN PURPURA
     Dosage: 20 MG, QD
     Route: 048
     Dates: start: 20100313, end: 20100316
  5. PREDNISOLONE [Suspect]
     Dosage: 15 MG, QD
     Route: 048
     Dates: start: 20100317, end: 20100323
  6. PREDNISOLONE [Suspect]
     Dosage: 10 MG, QD
     Route: 048
     Dates: start: 20100324, end: 20100328
  7. PREDNISOLONE [Suspect]
     Dosage: 5 MG, QD
     Route: 048
     Dates: start: 20100329, end: 20100405
  8. BERAPROST SODIUM [Concomitant]
  9. SILDENAFIL CITRATE [Concomitant]
  10. OXYGEN [Concomitant]

REACTIONS (12)
  - Pulmonary haemorrhage [Recovering/Resolving]
  - Pulmonary hypertensive crisis [Recovered/Resolved with Sequelae]
  - Cardio-respiratory arrest [Recovered/Resolved with Sequelae]
  - Cerebral infarction [Recovered/Resolved with Sequelae]
  - Brain injury [Recovered/Resolved with Sequelae]
  - Hypoxic-ischaemic encephalopathy [Recovered/Resolved with Sequelae]
  - White blood cell count increased [Recovered/Resolved]
  - Hepatic function abnormal [Not Recovered/Not Resolved]
  - Hepatic enzyme increased [Not Recovered/Not Resolved]
  - Aspartate aminotransferase increased [Not Recovered/Not Resolved]
  - Alanine aminotransferase increased [Not Recovered/Not Resolved]
  - Gamma-glutamyltransferase increased [Not Recovered/Not Resolved]
